FAERS Safety Report 9150387 (Version 1)
Quarter: 2013Q1

REPORT INFORMATION
  Report Type: Spontaneous
  Country: US (occurrence: None)
  Receive Date: 20130305
  Receipt Date: 20130305
  Transmission Date: 20140127
  Serious: Yes (Hospitalization)
  Sender: FDA-Public Use
  Company Number: None

PATIENT
  Age: 36 Year
  Sex: Female
  Weight: 53.3 kg

DRUGS (2)
  1. PIPERACILLIN SODIUM\TAZOBACTAM SODIUM [Suspect]
     Indication: APPENDICITIS
     Dosage: 3.375 GRAM Q8H AND Q6H IV
     Route: 042
     Dates: start: 20130123, end: 20130215
  2. PIPERACILLIN SODIUM\TAZOBACTAM SODIUM [Suspect]
     Indication: TUBO-OVARIAN ABSCESS
     Dosage: 3.375 GRAM Q8H AND Q6H IV
     Route: 042
     Dates: start: 20130123, end: 20130215

REACTIONS (1)
  - Neutropenia [None]
